FAERS Safety Report 13819054 (Version 2)
Quarter: 2018Q1

REPORT INFORMATION
  Report Type: Report from Study
  Country: US (occurrence: US)
  Receive Date: 20170731
  Receipt Date: 20180201
  Transmission Date: 20180508
  Serious: No
  Sender: FDA-Public Use
  Company Number: US-EXELIXIS-CABO-17007931

PATIENT
  Sex: Male

DRUGS (16)
  1. CABOMETYX [Suspect]
     Active Substance: CABOZANTINIB S-MALATE
     Indication: PRODUCT USED FOR UNKNOWN INDICATION
     Dosage: 40 MG, QD
     Route: 048
     Dates: start: 20161105, end: 20170103
  2. MAGNESIUM [Concomitant]
     Active Substance: MAGNESIUM
  3. MONTELUKAST [Concomitant]
     Active Substance: MONTELUKAST SODIUM
  4. OXYCODONE [Concomitant]
     Active Substance: OXYCODONE
  5. POLYETHYLENE [Concomitant]
     Active Substance: HIGH DENSITY POLYETHYLENE
  6. DRONABINOL. [Concomitant]
     Active Substance: DRONABINOL
  7. IPRATROPIUM [Concomitant]
     Active Substance: IPRATROPIUM
  8. LATANOPROST. [Concomitant]
     Active Substance: LATANOPROST
  9. DILTIAZEM. [Concomitant]
     Active Substance: DILTIAZEM
  10. QUINAPRIL. [Concomitant]
     Active Substance: QUINAPRIL
  11. LOVASTATIN. [Concomitant]
     Active Substance: LOVASTATIN
  12. WARFARIN [Concomitant]
     Active Substance: WARFARIN
  13. FLUTICASONE. [Concomitant]
     Active Substance: FLUTICASONE
  14. TRAZODONE [Concomitant]
     Active Substance: TRAZODONE HYDROCHLORIDE
  15. GLIPIZIDE. [Concomitant]
     Active Substance: GLIPIZIDE
  16. BECLOMETHASONE [Concomitant]
     Active Substance: BECLOMETHASONE

REACTIONS (1)
  - Feeling abnormal [Unknown]
